FAERS Safety Report 7481160-5 (Version None)
Quarter: 2011Q2

REPORT INFORMATION
  Report Type: 
  Country: None (occurrence: None)
  Receive Date: 20110512
  Receipt Date: 20110512
  Transmission Date: 20111010
  Serious: Yes (Life-Threatening, Hospitalization, Disabling, Other)
  Sender: FDA-Public Use
  Company Number: None

PATIENT
  Age: 60 Year
  Sex: Female
  Weight: 40.8237 kg

DRUGS (3)
  1. LEVAQUIN [Suspect]
     Indication: GASTROINTESTINAL INFECTION
     Dates: start: 20090901
  2. LEVAQUIN [Suspect]
     Indication: GASTROINTESTINAL INFECTION
     Dosage: 1 TAB DAILY
     Dates: start: 20090801
  3. RADIATION IMPLANT [Concomitant]

REACTIONS (3)
  - NEUROPATHY PERIPHERAL [None]
  - ABASIA [None]
  - IMPAIRED WORK ABILITY [None]
